FAERS Safety Report 10725006 (Version 1)
Quarter: 2015Q1

REPORT INFORMATION
  Report Type: Spontaneous
  Country: US (occurrence: US)
  Receive Date: 20150120
  Receipt Date: 20150120
  Transmission Date: 20150721
  Serious: No
  Sender: FDA-Public Use
  Company Number: US-009507513-1501USA005293

PATIENT
  Age: 4 Year

DRUGS (1)
  1. MIRALAX [Suspect]
     Active Substance: POLYETHYLENE GLYCOL 3350
     Indication: PRODUCT USED FOR UNKNOWN INDICATION
     Dosage: 4.25 G, UNKNOWN
     Route: 048
     Dates: start: 2013

REACTIONS (2)
  - Drug administered to patient of inappropriate age [Unknown]
  - Product use issue [Unknown]
